FAERS Safety Report 4351602-2 (Version None)
Quarter: 2004Q2

REPORT INFORMATION
  Report Type: 
  Country: None (occurrence: None)
  Receive Date: 20040503
  Receipt Date: 20040422
  Transmission Date: 20050107
  Serious: Yes (Death)
  Sender: FDA-Public Use
  Company Number: FR-AMGEN-UK073540

PATIENT
  Age: 79 Year
  Sex: Male

DRUGS (5)
  1. NEULASTA [Suspect]
     Indication: CHEMOTHERAPY
     Route: 058
     Dates: start: 20040326, end: 20040326
  2. EPREX [Concomitant]
  3. PREVISCAN [Concomitant]
  4. TAXOTERE [Concomitant]
  5. GEMZAR [Concomitant]
     Dates: start: 20030801

REACTIONS (6)
  - BODY TEMPERATURE INCREASED [None]
  - HAEMOGLOBIN DECREASED [None]
  - INFLAMMATION [None]
  - NEUTROPENIA [None]
  - SHOCK [None]
  - THERAPEUTIC RESPONSE DECREASED [None]
